FAERS Safety Report 12546465 (Version 2)
Quarter: 2016Q3

REPORT INFORMATION
  Report Type: Spontaneous
  Country: GB (occurrence: GB)
  Receive Date: 20160711
  Receipt Date: 20160722
  Transmission Date: 20161109
  Serious: Yes (Other)
  Sender: FDA-Public Use
  Company Number: PHHY2016GB092528

PATIENT
  Age: 50 Year
  Sex: Female

DRUGS (2)
  1. PREFIBIN [Suspect]
     Active Substance: BUPRENORPHINE
     Indication: ANALGESIC THERAPY
     Dosage: 2 MG, UNK
     Route: 065
  2. TEPHINE [Suspect]
     Active Substance: BUPRENORPHINE HYDROCHLORIDE
     Indication: ANALGESIC THERAPY
     Dosage: 200 UG, UNK
     Route: 065

REACTIONS (6)
  - Bedridden [Unknown]
  - Vomiting [Unknown]
  - Retching [Unknown]
  - Dizziness [Unknown]
  - Back pain [Unknown]
  - Malaise [Unknown]
